FAERS Safety Report 5360503-2 (Version None)
Quarter: 2007Q2

REPORT INFORMATION
  Report Type: 
  Country: None (occurrence: None)
  Receive Date: 20070618
  Receipt Date: 20070611
  Transmission Date: 20071010
  Serious: Yes (Hospitalization, Disabling)
  Sender: FDA-Public Use
  Company Number: B0473801A

PATIENT
  Age: 86 Year
  Sex: Female
  Weight: 41 kg

DRUGS (1)
  1. VALTREX [Suspect]
     Indication: HERPES ZOSTER
     Dosage: 1G THREE TIMES PER DAY
     Route: 048
     Dates: start: 20070528, end: 20070501

REACTIONS (9)
  - AMNESIA [None]
  - BLOOD CREATININE INCREASED [None]
  - BLOOD UREA INCREASED [None]
  - COMMUNICATION DISORDER [None]
  - DISORIENTATION [None]
  - EATING DISORDER SYMPTOM [None]
  - PSYCHIATRIC SYMPTOM [None]
  - RENAL IMPAIRMENT [None]
  - RESTLESSNESS [None]
